FAERS Safety Report 6825059-3 (Version None)
Quarter: 2010Q3

REPORT INFORMATION
  Report Type: 
  Country: None (occurrence: None)
  Receive Date: 20100708
  Receipt Date: 20061229
  Transmission Date: 20110219
  Serious: No
  Sender: FDA-Public Use
  Company Number: US-PFIZER INC-2007001422

PATIENT
  Sex: Male
  Weight: 113.4 kg

DRUGS (5)
  1. CHANTIX [Suspect]
     Indication: SMOKING CESSATION THERAPY
     Dates: start: 20061215
  2. REQUIP [Concomitant]
     Indication: RESTLESS LEGS SYNDROME
  3. ZESTORETIC [Concomitant]
     Indication: HYPERTENSION
  4. STARLIX [Concomitant]
     Indication: DIABETES MELLITUS
  5. LUVOX [Concomitant]

REACTIONS (13)
  - ARTHRALGIA [None]
  - ASTHENIA [None]
  - DIZZINESS [None]
  - FATIGUE [None]
  - HYPOAESTHESIA [None]
  - INFLUENZA LIKE ILLNESS [None]
  - MALAISE [None]
  - MUSCLE SPASMS [None]
  - MUSCULAR WEAKNESS [None]
  - NAUSEA [None]
  - PAIN [None]
  - SOMNOLENCE [None]
  - VISION BLURRED [None]
